FAERS Safety Report 9873817 (Version 1)
Quarter: 2014Q1

REPORT INFORMATION
  Report Type: Spontaneous
  Country: US (occurrence: US)
  Receive Date: 20140206
  Receipt Date: 20140206
  Transmission Date: 20141002
  Serious: No
  Sender: FDA-Public Use
  Company Number: US-ACORDA-ACO_34507_2013

PATIENT
  Age: 33 Year
  Sex: Female
  Weight: 92.63 kg

DRUGS (1)
  1. AMPYRA [Suspect]
     Indication: GAIT DISTURBANCE
     Dosage: 10 MG, BID
     Route: 048
     Dates: start: 20130107, end: 20130218

REACTIONS (7)
  - Mobility decreased [Unknown]
  - Gait disturbance [Not Recovered/Not Resolved]
  - Fall [Unknown]
  - Contusion [Unknown]
  - Urinary tract infection [Unknown]
  - Back pain [Unknown]
  - Balance disorder [Unknown]
